FAERS Safety Report 23983630 (Version 5)
Quarter: 2024Q3

REPORT INFORMATION
  Report Type: Report from Study
  Country: ES (occurrence: ES)
  Receive Date: 20240618
  Receipt Date: 20240810
  Transmission Date: 20241016
  Serious: Yes (Hospitalization, Other)
  Sender: ABBVIE
  Company Number: ES-ABBVIE-5802338

PATIENT
  Sex: Female
  Weight: 58 kg

DRUGS (4)
  1. CARBIDOPA\LEVODOPA [Suspect]
     Active Substance: CARBIDOPA\LEVODOPA
     Indication: Parkinson^s disease
     Route: 050
     Dates: start: 20210831, end: 202406
  2. CARBIDOPA\LEVODOPA [Suspect]
     Active Substance: CARBIDOPA\LEVODOPA
     Dosage: DOSES ADJUSTED, MAINTAIN LOW DOSES
     Route: 050
     Dates: start: 202406, end: 202407
  3. CARBIDOPA\LEVODOPA [Suspect]
     Active Substance: CARBIDOPA\LEVODOPA
     Dosage: ADJUSTMENTS MADE DURING HOSPITALIZATION, USING EXTRA DOSE EVERY HOUR AND A HALF?LAST ADMIN 2024
     Route: 050
     Dates: start: 202407
  4. CARBIDOPA\LEVODOPA [Suspect]
     Active Substance: CARBIDOPA\LEVODOPA
     Dosage: CONTINUOUS DOSE IS INCREASED BY 0.4 ML, LEAVING IT AT 2.8 ML/H
     Route: 050
     Dates: start: 2024

REACTIONS (10)
  - Fall [Not Recovered/Not Resolved]
  - Fracture pain [Unknown]
  - On and off phenomenon [Unknown]
  - Hip fracture [Not Recovered/Not Resolved]
  - Device issue [Recovered/Resolved]
  - Intentional product misuse [Unknown]
  - Dyskinesia [Recovering/Resolving]
  - Freezing phenomenon [Not Recovered/Not Resolved]
  - Device issue [Unknown]
  - Dyskinesia [Recovered/Resolved]

NARRATIVE: CASE EVENT DATE: 20240101
